FAERS Safety Report 7057573-2 (Version None)
Quarter: 2010Q4

REPORT INFORMATION
  Report Type: 
  Country: None (occurrence: None)
  Receive Date: 20101022
  Receipt Date: 20101013
  Transmission Date: 20110411
  Serious: Yes (Hospitalization)
  Sender: FDA-Public Use
  Company Number: SE-ASTRAZENECA-2010SE48653

PATIENT
  Age: 56 Year
  Sex: Female

DRUGS (5)
  1. ATACAND [Suspect]
     Indication: ESSENTIAL HYPERTENSION
     Route: 048
     Dates: start: 20010101, end: 20100107
  2. SPIRALGIN [Suspect]
     Indication: HEADACHE
     Route: 048
     Dates: start: 20100201, end: 20100207
  3. ELTROXIN [Concomitant]
  4. BILOL [Concomitant]
  5. AMLODIPIN 1A PHARMA GMBH [Concomitant]

REACTIONS (3)
  - ANGIOEDEMA [None]
  - HEADACHE [None]
  - TYPE I HYPERSENSITIVITY [None]
